FAERS Safety Report 7876466-1 (Version None)
Quarter: 2011Q4

REPORT INFORMATION
  Report Type: 
  Country: None (occurrence: None)
  Receive Date: 20111031
  Receipt Date: 20111020
  Transmission Date: 20120403
  Serious: Yes (Other)
  Sender: FDA-Public Use
  Company Number: PHHY2011JP14698

PATIENT
  Sex: Male

DRUGS (51)
  1. CLOZARIL [Suspect]
     Dosage: 225 MG
     Route: 048
     Dates: start: 20110519, end: 20110601
  2. INVEGA [Concomitant]
     Dosage: 9 MG, UNK
     Route: 048
  3. INVEGA [Concomitant]
     Dosage: 12 MG, UNK
     Route: 048
     Dates: start: 20110420
  4. LORAZEPAM [Concomitant]
     Dosage: 0.5 MG, UNK
     Route: 048
     Dates: end: 20110421
  5. CLOZARIL [Suspect]
     Dosage: 100 MG
     Route: 048
     Dates: start: 20110316, end: 20110322
  6. CLOZARIL [Suspect]
     Dosage: 150 MG
     Route: 048
     Dates: start: 20110505, end: 20110508
  7. CLOZARIL [Suspect]
     Dosage: 250 MG
     Route: 048
     Dates: start: 20110602, end: 20110608
  8. SODIUM PICOSULFATE [Concomitant]
     Dosage: 2.5 MG, UNK
     Route: 047
  9. RONFLEMAN [Concomitant]
     Dosage: 0.25 MG, UNK
     Route: 048
  10. CLOZARIL [Suspect]
     Dosage: 75 MG
     Route: 048
     Dates: start: 20110309, end: 20110315
  11. CLOZARIL [Suspect]
     Dosage: 275 MG
     Route: 048
     Dates: start: 20110609, end: 20110616
  12. RONFLEMAN [Concomitant]
     Dosage: 0.25 MG, UNK
     Route: 048
     Dates: end: 20110623
  13. LOXOPROFEN [Concomitant]
     Dosage: 60 MG, UNK
     Route: 048
     Dates: start: 20110216
  14. TAMIFLU [Concomitant]
     Dosage: 150 MG, UNK
     Route: 048
     Dates: start: 20110219, end: 20110223
  15. CLOZARIL [Suspect]
     Dosage: 25 MG
     Route: 048
     Dates: start: 20110202, end: 20110204
  16. CLOZARIL [Suspect]
     Dosage: 50 MG
     Route: 048
     Dates: start: 20110205, end: 20110208
  17. CLOZARIL [Suspect]
     Dosage: 12.5 MG
     Route: 048
     Dates: start: 20110421, end: 20110421
  18. CLOZARIL [Suspect]
     Dosage: 75 MG
     Route: 048
     Dates: start: 20110425, end: 20110427
  19. CLOZARIL [Suspect]
     Dosage: 175 MG
     Route: 048
     Dates: start: 20110509, end: 20110513
  20. RISPERDAL [Concomitant]
     Indication: SCHIZOPHRENIA
     Dosage: 4 MG, UNK
     Route: 048
  21. RISPERDAL [Concomitant]
     Dosage: 3 MG, UNK
     Route: 048
  22. FLUNITRAZEPAM [Concomitant]
     Indication: SCHIZOPHRENIA
     Dosage: 1 MG, UNK
     Route: 048
  23. SITAGLIPTIN PHOSPHATE [Concomitant]
     Dosage: 50 MG, UNK
     Route: 048
     Dates: start: 20110330
  24. SITAGLIPTIN PHOSPHATE [Concomitant]
     Dosage: 100 MG, UNK
     Route: 048
  25. RONFLEMAN [Concomitant]
     Dosage: 0.25 MG, UNK
     Route: 048
  26. PREDNISOLONE [Suspect]
     Dosage: 15 MG, QD
     Dates: start: 20110222, end: 20110228
  27. INVEGA [Concomitant]
     Indication: SCHIZOPHRENIA
     Dosage: 6 MG, UNK
     Dates: start: 20110323
  28. TASMOLIN [Concomitant]
     Dosage: 1 MG, UNK
     Route: 048
  29. LITHIUM CARBONATE [Concomitant]
     Indication: SCHIZOPHRENIA
     Dosage: 400 MG, UNK
     Dates: start: 20110330
  30. RONFLEMAN [Concomitant]
     Indication: SCHIZOPHRENIA
     Dosage: 0.25 MG, UNK
     Route: 048
     Dates: start: 20110205
  31. ZITHROMAX [Concomitant]
     Dosage: 2000 MG, UNK
     Route: 048
     Dates: start: 20110217, end: 20110217
  32. CLOZARIL [Suspect]
     Indication: SCHIZOPHRENIA
     Dosage: 12.5 MG,
     Route: 048
     Dates: start: 20110201, end: 20110201
  33. CLOZARIL [Suspect]
     Dosage: 75 MG
     Dates: start: 20110209, end: 20110215
  34. CLOZARIL [Suspect]
     Dosage: 100 MG
     Route: 048
     Dates: start: 20110216, end: 20110222
  35. CLOZARIL [Suspect]
     Dosage: 50 MG
     Route: 048
     Dates: start: 20110422, end: 20110424
  36. CLOZARIL [Suspect]
     Dosage: 100 MG
     Route: 048
     Dates: start: 20110428, end: 20110430
  37. CLOZARIL [Suspect]
     Dosage: 125 MG
     Route: 048
     Dates: start: 20110501, end: 20110504
  38. CLOZARIL [Suspect]
     Dosage: 200 MG
     Route: 048
     Dates: start: 20110514, end: 20110518
  39. RHUBARB [Concomitant]
     Dosage: 1000 MG, UNK
     Route: 048
  40. RHUBARB [Concomitant]
     Dosage: 3000 MG, UNK
     Route: 048
  41. VALPROATE SODIUM [Concomitant]
     Indication: SCHIZOPHRENIA
     Dosage: 600 MG, UNK
     Route: 048
  42. CLOZARIL [Suspect]
     Dosage: 300 MG
     Route: 048
     Dates: start: 20110617
  43. PREDNISOLONE [Suspect]
     Dosage: 10 MG, UNK
     Dates: start: 20110301, end: 20110307
  44. NITRAZEPAM [Concomitant]
     Indication: SCHIZOPHRENIA
     Dosage: 5 MG, UNK
     Route: 048
  45. TASMOLIN [Concomitant]
     Dosage: 2 MG, UNK
     Route: 048
  46. VERAPAMIL HCL [Concomitant]
     Dosage: 40 MG, UNK
     Route: 048
     Dates: start: 20110223, end: 20110301
  47. CLOZARIL [Suspect]
     Dosage: 50 MG
     Route: 048
     Dates: start: 20110302, end: 20110308
  48. PREDNISOLONE [Suspect]
     Dosage: 5 MG, DAILY
     Dates: start: 20110308, end: 20110314
  49. RISPERDAL [Concomitant]
     Dosage: 4 MG, UNK
     Route: 048
     Dates: start: 20110415, end: 20110419
  50. LORAZEPAM [Concomitant]
     Indication: SCHIZOPHRENIA
     Dosage: 0.5 MG, UNK
     Route: 048
     Dates: start: 20110202
  51. LOXOPROFEN [Concomitant]
     Dosage: 60 MG, UNK
     Route: 048
     Dates: end: 20110224

REACTIONS (8)
  - C-REACTIVE PROTEIN DECREASED [None]
  - RESPIRATORY FAILURE [None]
  - PYREXIA [None]
  - DIABETES MELLITUS [None]
  - VIRAL INFECTION [None]
  - PLATELET COUNT INCREASED [None]
  - EOSINOPHIL COUNT INCREASED [None]
  - PSYCHIATRIC SYMPTOM [None]
